FAERS Safety Report 10211711 (Version 1)
Quarter: 2014Q2

REPORT INFORMATION
  Report Type: Spontaneous
  Country: FR (occurrence: FR)
  Receive Date: 20140602
  Receipt Date: 20140602
  Transmission Date: 20141212
  Serious: Yes (Life-Threatening, Hospitalization)
  Sender: FDA-Public Use
  Company Number: FR-FRI-1000067822

PATIENT
  Age: 40 Year
  Sex: Female

DRUGS (1)
  1. ACAMPROSATE [Suspect]
     Indication: ALCOHOL ABUSE
     Route: 048
     Dates: start: 20090731, end: 20090922

REACTIONS (3)
  - Hypokalaemia [Recovered/Resolved]
  - Torsade de pointes [Recovered/Resolved]
  - Diarrhoea [Recovered/Resolved]
